FAERS Safety Report 16366600 (Version 1)
Quarter: 2019Q3

REPORT INFORMATION
  Report Type: Spontaneous
  Country: US (occurrence: US)
  Receive Date: 20190528
  Receipt Date: 20190528
  Transmission Date: 20191004
  Serious: Yes (Other)
  Sender: FDA-Public Use
  Company Number: None

PATIENT
  Age: 48 Year
  Sex: Female
  Weight: 50.4 kg

DRUGS (9)
  1. ERYTHROMYCIN PO [Concomitant]
  2. TYROSINE PO [Concomitant]
  3. VITAMIN C 1000MG PO [Concomitant]
  4. MOTEGRITY [Suspect]
     Active Substance: PRUCALOPRIDE SUCCINATE
     Indication: IMPAIRED GASTRIC EMPTYING
     Route: 048
     Dates: start: 20190322, end: 20190527
  5. MOTEGRITY [Suspect]
     Active Substance: PRUCALOPRIDE SUCCINATE
     Indication: CONSTIPATION
     Route: 048
     Dates: start: 20190322, end: 20190527
  6. MOTILIPRO SUPPLEMENT PO [Concomitant]
  7. CBD OIL [Concomitant]
     Active Substance: CANNABIDIOL\HERBALS
  8. FISH OIL PO [Concomitant]
  9. THREONINE PO [Concomitant]

REACTIONS (2)
  - Nightmare [None]
  - Hallucination, visual [None]

NARRATIVE: CASE EVENT DATE: 20190526
